FAERS Safety Report 8564748-X (Version None)
Quarter: 2012Q3

REPORT INFORMATION
  Report Type: 
  Country: None (occurrence: None)
  Receive Date: 20120803
  Receipt Date: 20120712
  Transmission Date: 20120928
  Serious: Yes (Other)
  Sender: FDA-Public Use
  Company Number: JP-ASTELLAS-2012JP006620

PATIENT
  Age: 61 Year
  Sex: Male
  Weight: 55 kg

DRUGS (17)
  1. TACROLIMUS [Suspect]
     Dosage: 4 MG, BID
     Route: 048
     Dates: start: 20110210, end: 20110211
  2. TPN                                /00897001/ [Suspect]
     Dosage: UNK
     Route: 041
     Dates: start: 20110204, end: 20110224
  3. RINDERON                           /00008502/ [Concomitant]
     Indication: COLITIS ULCERATIVE
     Dosage: 0.5 MG, UNKNOWN/D
     Route: 054
  4. CEREKINON [Concomitant]
     Dosage: UNK
     Route: 048
  5. ALENDRONATE SODIUM [Concomitant]
     Indication: PROPHYLAXIS
     Dosage: UNK
     Route: 048
  6. IMURAN [Concomitant]
     Indication: COLITIS ULCERATIVE
     Dosage: UNK
     Route: 048
     Dates: end: 20101221
  7. CORTRIL                            /00028601/ [Concomitant]
     Indication: PROPHYLAXIS
     Dosage: UNK
     Route: 048
  8. SILECE [Concomitant]
     Dosage: UNK
     Route: 048
  9. TACROLIMUS [Suspect]
     Indication: COLITIS ULCERATIVE
     Dosage: 2 MG, BID
     Route: 048
     Dates: start: 20110216, end: 20120612
  10. BIOFERMIN                          /01617201/ [Concomitant]
     Indication: COLITIS ULCERATIVE
     Dosage: UNK
     Route: 048
  11. CRESTOR [Concomitant]
     Dosage: UNK
     Route: 048
  12. FERRUM                             /00023505/ [Concomitant]
     Dosage: UNK
     Route: 048
  13. TACROLIMUS [Suspect]
     Dosage: 3 MG, BID
     Route: 048
     Dates: start: 20110208, end: 20110209
  14. OMEPRAZOLE [Concomitant]
     Dosage: UNK
     Route: 048
  15. CINAL [Concomitant]
     Dosage: UNK
     Route: 048
  16. TACROLIMUS [Suspect]
     Dosage: 3 MG, BID
     Route: 048
     Dates: start: 20110212, end: 20110215
  17. PENTASA [Concomitant]
     Indication: COLITIS ULCERATIVE
     Dosage: 3000 MG, UNKNOWN/D
     Route: 048

REACTIONS (1)
  - LIVER DISORDER [None]
